FAERS Safety Report 5036308-9 (Version None)
Quarter: 2006Q2

REPORT INFORMATION
  Report Type: 
  Country: None (occurrence: None)
  Receive Date: 20060601
  Receipt Date: 20060427
  Transmission Date: 20061013
  Serious: No
  Sender: FDA-Public Use
  Company Number: US200604004554

PATIENT
  Age: 59 Year
  Sex: Male

DRUGS (7)
  1. CYMBALTA [Suspect]
     Indication: NEUROPATHY
     Dosage: 30MG, DAILY (1/D),
     Dates: start: 20060401, end: 20060101
  2. ATENOLOL [Concomitant]
  3. HYDROCHLOROTHIAZIDE [Concomitant]
  4. COZAAR [Concomitant]
  5. GLIPIZIDE [Concomitant]
  6. METFORMIN [Concomitant]
  7. FLUNISOLIDE (FLUNISOLIDE) [Concomitant]

REACTIONS (4)
  - AURICULAR SWELLING [None]
  - EAR DISCOMFORT [None]
  - MENIERE'S DISEASE [None]
  - TINNITUS [None]
